FAERS Safety Report 9539035 (Version 2)
Quarter: 2014Q3

REPORT INFORMATION
  Report Type: Spontaneous
  Country: US (occurrence: US)
  Receive Date: 20130920
  Receipt Date: 20140821
  Transmission Date: 20150326
  Serious: Yes (Hospitalization, Other)
  Sender: FDA-Public Use
  Company Number: US-009507513-1309USA008118

PATIENT
  Sex: Female

DRUGS (1)
  1. NUVARING [Suspect]
     Active Substance: ETHINYL ESTRADIOL\ETONOGESTREL
     Indication: CONTRACEPTION
     Dosage: 1 RING 3 WEEKS IN, 1 WEEK OUT
     Route: 067
     Dates: start: 200712

REACTIONS (9)
  - Left ventricular dysfunction [Unknown]
  - Acute myocardial infarction [Unknown]
  - Dyslipidaemia [Unknown]
  - Hypertension [Unknown]
  - Diabetes mellitus [Unknown]
  - Coronary arterial stent insertion [Unknown]
  - Transient ischaemic attack [Unknown]
  - Cardiac ventricular thrombosis [Unknown]
  - Presyncope [Unknown]

NARRATIVE: CASE EVENT DATE: 200911
